FAERS Safety Report 19736420 (Version 1)
Quarter: 2021Q3

REPORT INFORMATION
  Report Type: Spontaneous
  Country: SE (occurrence: SE)
  Receive Date: 20210824
  Receipt Date: 20210824
  Transmission Date: 20211014
  Serious: No
  Sender: FDA-Public Use
  Company Number: SE-LUPIN PHARMACEUTICALS INC.-2021-15495

PATIENT
  Age: 47 Year
  Sex: Female

DRUGS (2)
  1. BETAMETHASONE. [Suspect]
     Active Substance: BETAMETHASONE
     Indication: HIDRADENITIS
     Dosage: 5 MILLIGRAM, TWICE WEEKLY
     Route: 048
  2. BETAMETHASONE. [Suspect]
     Active Substance: BETAMETHASONE
     Dosage: TAPERED DOSE
     Route: 048

REACTIONS (2)
  - Rebound effect [Recovered/Resolved]
  - Hidradenitis [Recovered/Resolved]
